FAERS Safety Report 7522043-1 (Version None)
Quarter: 2011Q2

REPORT INFORMATION
  Report Type: 
  Country: None (occurrence: None)
  Receive Date: 20110603
  Receipt Date: 20110520
  Transmission Date: 20111010
  Serious: Yes (Other)
  Sender: FDA-Public Use
  Company Number: US-JNJFOC-20110509972

PATIENT
  Sex: Male

DRUGS (17)
  1. CELLCEPT [Suspect]
     Indication: RENAL TRANSPLANT
     Route: 065
     Dates: start: 20021016, end: 20031101
  2. VASOTEC [Concomitant]
     Route: 065
     Dates: start: 20030204
  3. FOLIC ACID [Concomitant]
     Route: 065
     Dates: start: 20030204
  4. PROGRAF [Suspect]
     Indication: RENAL TRANSPLANT
     Route: 065
     Dates: start: 20021202
  5. STRESS TABS [Concomitant]
     Route: 065
     Dates: start: 20031016
  6. ARANESP [Concomitant]
     Route: 065
     Dates: start: 20020520
  7. SYNTHROID [Concomitant]
     Route: 065
     Dates: start: 19940101
  8. BELATACEPT [Suspect]
     Indication: RENAL TRANSPLANT
     Route: 042
     Dates: start: 20021015, end: 20021112
  9. PREDNISONE [Suspect]
     Indication: RENAL TRANSPLANT
     Route: 065
     Dates: start: 20021202
  10. ALLOPURINOL [Concomitant]
     Route: 065
     Dates: start: 19940101
  11. DAPSON [Concomitant]
     Route: 065
     Dates: start: 20021016
  12. SIMULECT [Suspect]
     Indication: RENAL TRANSPLANT
     Route: 065
     Dates: start: 20021015, end: 20021019
  13. POTASSIUM PHOSPHATES [Concomitant]
     Route: 065
     Dates: start: 20030205
  14. LASIX [Concomitant]
     Route: 065
     Dates: start: 20021202
  15. ORTHOCLONE OKT3 [Suspect]
     Indication: RENAL TRANSPLANT
     Route: 065
     Dates: start: 20021115, end: 20021124
  16. PROTONIX [Concomitant]
     Route: 065
     Dates: start: 20021016
  17. BICITRA [Concomitant]
     Route: 065
     Dates: start: 20030911

REACTIONS (1)
  - EPSTEIN-BARR VIRUS ASSOCIATED LYMPHOPROLIFERATIVE DISORDER [None]
